FAERS Safety Report 13467967 (Version 1)
Quarter: 2017Q2

REPORT INFORMATION
  Report Type: Spontaneous
  Country: US (occurrence: US)
  Receive Date: 20170421
  Receipt Date: 20170421
  Transmission Date: 20170830
  Serious: Yes (Other)
  Sender: FDA-Public Use
  Company Number: US-ALLERGAN-1708202US

PATIENT
  Age: 63 Year
  Sex: Female

DRUGS (3)
  1. SYNTHROID [Suspect]
     Active Substance: LEVOTHYROXINE SODIUM
     Indication: PRODUCT USED FOR UNKNOWN INDICATION
     Dosage: UNK
     Dates: start: 1991, end: 2010
  2. CITALOPRAM HYDROBROMIDE UNK [Suspect]
     Active Substance: CITALOPRAM HYDROBROMIDE
     Indication: POST-TRAUMATIC STRESS DISORDER
     Dosage: 10 MG, UNK
     Route: 065
     Dates: start: 1991, end: 2010
  3. LITHIUM. [Concomitant]
     Active Substance: LITHIUM
     Dosage: UNK
     Dates: start: 1983

REACTIONS (10)
  - Feeling drunk [Unknown]
  - Malaise [Unknown]
  - Pain [Unknown]
  - Abdominal discomfort [Unknown]
  - Weight increased [Unknown]
  - Vomiting [Unknown]
  - Off label use [Unknown]
  - Cerebrovascular accident [Unknown]
  - Hysterectomy [Unknown]
  - Headache [Unknown]

NARRATIVE: CASE EVENT DATE: 1991
